FAERS Safety Report 23358821 (Version 1)
Quarter: 2024Q1

REPORT INFORMATION
  Report Type: Spontaneous
  Country: AU (occurrence: AU)
  Receive Date: 20240102
  Receipt Date: 20240102
  Transmission Date: 20240410
  Serious: Yes (Hospitalization, Other)
  Sender: FDA-Public Use
  Company Number: AU-PFIZER INC-PV202300206407

PATIENT
  Age: 53 Year
  Sex: Female

DRUGS (4)
  1. METHOTREXATE SODIUM [Suspect]
     Active Substance: METHOTREXATE SODIUM
     Indication: Rheumatoid arthritis
  2. KESIMPTA [Suspect]
     Active Substance: OFATUMUMAB
     Indication: Multiple sclerosis relapse
     Dosage: 20 MG, MONTHLY
     Route: 058
     Dates: start: 20221216
  3. KESIMPTA [Suspect]
     Active Substance: OFATUMUMAB
     Dosage: UNK
     Dates: start: 20230419
  4. KESIMPTA [Suspect]
     Active Substance: OFATUMUMAB
     Dosage: 20 MG, MONTHLY, EVERY 30 DAYS
     Route: 058

REACTIONS (7)
  - Febrile neutropenia [Recovered/Resolved]
  - White blood cell count decreased [Unknown]
  - Thyroid disorder [Unknown]
  - Paronychia [Unknown]
  - Rheumatoid arthritis [Unknown]
  - COVID-19 [Unknown]
  - Product dose omission issue [Unknown]

NARRATIVE: CASE EVENT DATE: 20230101
